FAERS Safety Report 6330572-1 (Version None)
Quarter: 2009Q3

REPORT INFORMATION
  Report Type: 
  Country: None (occurrence: None)
  Receive Date: 20090827
  Receipt Date: 20090824
  Transmission Date: 20100115
  Serious: Yes (Death, Other)
  Sender: FDA-Public Use
  Company Number: AU-BRISTOL-MYERS SQUIBB COMPANY-14751838

PATIENT
  Age: 68 Year
  Sex: Female

DRUGS (3)
  1. AMPHOTERICIN B [Suspect]
  2. FLUCONAZOLE [Suspect]
  3. FLUCYTOSINE [Suspect]

REACTIONS (6)
  - ATRIAL FIBRILLATION [None]
  - DEATH [None]
  - FALL [None]
  - HYPOKALAEMIA [None]
  - HYPOMAGNESAEMIA [None]
  - HYPONATRAEMIA [None]
